FAERS Safety Report 5495216-X (Version None)
Quarter: 2007Q4

REPORT INFORMATION
  Report Type: 
  Country: None (occurrence: None)
  Receive Date: 20071024
  Receipt Date: 20071012
  Transmission Date: 20080405
  Serious: Yes (Other)
  Sender: FDA-Public Use
  Company Number: DE-PFIZER INC-2007071381

PATIENT
  Sex: Female
  Weight: 101 kg

DRUGS (2)
  1. CELEBREX [Suspect]
     Indication: BACK PAIN
     Dosage: DAILY DOSE:200MG
  2. ALCOHOL [Interacting]
     Route: 048

REACTIONS (7)
  - DRUG INTERACTION [None]
  - DYSPNOEA [None]
  - OEDEMA PERIPHERAL [None]
  - PRURITUS [None]
  - SWELLING FACE [None]
  - TONGUE OEDEMA [None]
  - URTICARIA [None]
